FAERS Safety Report 8144687-9 (Version None)
Quarter: 2012Q1

REPORT INFORMATION
  Report Type: 
  Country: None (occurrence: None)
  Receive Date: 20120217
  Receipt Date: 20120216
  Transmission Date: 20120608
  Serious: Yes (Other)
  Sender: FDA-Public Use
  Company Number: ZA-PFIZER INC-2012022535

PATIENT
  Age: 30 Year
  Sex: Male

DRUGS (2)
  1. LYRICA [Suspect]
     Dosage: 75 MG, 2X/DAY (BD)
     Route: 048
  2. TRAMADOL [Concomitant]
     Dosage: UNK, AS NEEDED
     Route: 048

REACTIONS (1)
  - HAEMATOCHEZIA [None]
